FAERS Safety Report 16363038 (Version 1)
Quarter: 2019Q2

REPORT INFORMATION
  Report Type: Spontaneous
  Country: FR (occurrence: FR)
  Receive Date: 20190528
  Receipt Date: 20190528
  Transmission Date: 20190711
  Serious: Yes (Hospitalization)
  Sender: FDA-Public Use
  Company Number: FR-AMREGENT-20191028

PATIENT
  Age: 55 Year
  Sex: Female

DRUGS (7)
  1. PANTOPRAZOLE [Suspect]
     Active Substance: PANTOPRAZOLE
     Dosage: 8 MG, 1 HR
     Route: 042
     Dates: start: 20190219, end: 20190219
  2. BISOCE [Concomitant]
     Active Substance: BISOPROLOL
     Dosage: 2.5 MG, 1 IN 1 D
     Route: 048
  3. DIAZEPAM TEVA [Concomitant]
     Active Substance: DIAZEPAM
     Dosage: 5 MG, 1 IN 1 D
     Route: 048
  4. DIFFU K [Concomitant]
     Active Substance: POTASSIUM CHLORIDE
     Dosage: 2400 MG,1 IN 1 D
     Route: 048
  5. FERINJECT [Suspect]
     Active Substance: FERRIC CARBOXYMALTOSE
     Dosage: 500 MG,1 TOTAL
     Route: 042
     Dates: start: 20190219, end: 20190219
  6. PRIMPERAN [Concomitant]
     Active Substance: METOCLOPRAMIDE HYDROCHLORIDE
     Dosage: 10MG, 1 IN 1 D
     Route: 048
     Dates: start: 20190220
  7. LEVETIRACETAM EG [Concomitant]
     Active Substance: LEVETIRACETAM
     Dosage: 500MG,1 D
     Route: 048

REACTIONS (1)
  - Phlebitis [Recovered/Resolved]

NARRATIVE: CASE EVENT DATE: 20190222
